FAERS Safety Report 12775173 (Version 2)
Quarter: 2016Q4

REPORT INFORMATION
  Report Type: Report from Study
  Country: KR (occurrence: KR)
  Receive Date: 20160923
  Receipt Date: 20161107
  Transmission Date: 20170207
  Serious: No
  Sender: FDA-Public Use
  Company Number: PHHY2016KR131066

PATIENT
  Age: 44 Year
  Sex: Female

DRUGS (16)
  1. ALPRAZOLAM. [Concomitant]
     Active Substance: ALPRAZOLAM
     Indication: INSOMNIA
     Dosage: 0.125 MG, UNK
     Route: 048
     Dates: start: 20150724, end: 20150724
  2. LASIX [Concomitant]
     Active Substance: FUROSEMIDE
     Indication: URINE OUTPUT DECREASED
     Dosage: 20 MG, UNK
     Route: 042
     Dates: start: 20150713, end: 20150728
  3. INFLUENZA VIRUS VACCINE [Concomitant]
     Active Substance: INFLUENZA VIRUS VACCINE
     Indication: ANTIVIRAL PROPHYLAXIS
     Dosage: 0.5 OT, UNK
     Route: 030
     Dates: start: 20151013, end: 20151013
  4. ASPIRIN. [Concomitant]
     Active Substance: ASPIRIN
     Indication: ANTIPLATELET THERAPY
     Dosage: 100 MG, UNK
     Route: 048
     Dates: start: 20150722, end: 20150803
  5. RENAGEL [Concomitant]
     Active Substance: SEVELAMER HYDROCHLORIDE
     Indication: HYPERCALCAEMIA
     Dosage: 1600 MG, UNK
     Route: 048
     Dates: start: 20150712, end: 20150803
  6. ITOPRIDE HYDROCHLORIDE [Concomitant]
     Active Substance: ITOPRIDE HYDROCHLORIDE
     Indication: DYSPEPSIA
     Route: 065
     Dates: start: 20150721, end: 20150803
  7. TASIGNA [Suspect]
     Active Substance: NILOTINIB
     Dosage: 400 MG, QD
     Route: 048
     Dates: start: 20150825
  8. AGRYLIN [Concomitant]
     Active Substance: ANAGRELIDE HYDROCHLORIDE
     Indication: THROMBOCYTOSIS
     Dosage: 4 MG, UNK
     Route: 048
     Dates: start: 20150714, end: 20150723
  9. GASMOTIN [Concomitant]
     Active Substance: MOSAPRIDE CITRATE
     Indication: DYSPEPSIA
     Dosage: 5 MG, UNK
     Route: 048
     Dates: start: 20150720, end: 20150720
  10. PENIRAMIN [Concomitant]
     Indication: ALLERGY PROPHYLAXIS
     Dosage: 4 MG, UNK
     Route: 042
     Dates: start: 20150711, end: 20150719
  11. LIVERACT [Concomitant]
     Indication: LIVER FUNCTION TEST ABNORMAL
     Dosage: 10 MG, UNK
     Route: 042
     Dates: start: 20150725, end: 20150727
  12. TASIGNA [Suspect]
     Active Substance: NILOTINIB
     Indication: CHRONIC MYELOID LEUKAEMIA
     Dosage: 600 MG, QD
     Route: 048
     Dates: start: 20150717, end: 20150818
  13. PETHIDINE [Concomitant]
     Active Substance: MEPERIDINE
     Indication: PAIN PROPHYLAXIS
     Dosage: 25 MG, UNK
     Route: 042
     Dates: start: 20150713, end: 20160105
  14. ITOPRIDE HCL [Concomitant]
     Indication: DYSPEPSIA
     Dosage: 150 MG, UNK
     Route: 048
     Dates: start: 20150721, end: 20150803
  15. ISEPAMICIN [Concomitant]
     Active Substance: ISEPAMICIN
     Indication: PYREXIA
     Dosage: 200 MG, UNK
     Route: 042
     Dates: start: 20150719, end: 20150727
  16. TAZIME [Concomitant]
     Indication: PYREXIA
     Dosage: 6 G, UNK
     Route: 042
     Dates: start: 20150709, end: 20150720

REACTIONS (1)
  - Dyspepsia [Recovered/Resolved]

NARRATIVE: CASE EVENT DATE: 20150724
